FAERS Safety Report 6926886-4 (Version None)
Quarter: 2010Q3

REPORT INFORMATION
  Report Type: 
  Country: None (occurrence: None)
  Receive Date: 20100816
  Receipt Date: 20100702
  Transmission Date: 20110219
  Serious: No
  Sender: FDA-Public Use
  Company Number: US-ABBOTT-10P-163-0655430-00

PATIENT
  Sex: Female
  Weight: 72.64 kg

DRUGS (2)
  1. SIMCOR [Suspect]
     Indication: BLOOD TRIGLYCERIDES INCREASED
     Dosage: 500/20
     Dates: start: 20100201
  2. SIMCOR [Suspect]
     Indication: BLOOD CHOLESTEROL INCREASED

REACTIONS (9)
  - DIARRHOEA [None]
  - DIZZINESS [None]
  - FALL [None]
  - FLUSHING [None]
  - HEAD INJURY [None]
  - JOINT INJURY [None]
  - LOSS OF CONSCIOUSNESS [None]
  - NAUSEA [None]
  - ONYCHOCLASIS [None]
